FAERS Safety Report 21355127 (Version 1)
Quarter: 2022Q3

REPORT INFORMATION
  Report Type: Spontaneous
  Country: US (occurrence: US)
  Receive Date: 20220920
  Receipt Date: 20220920
  Transmission Date: 20221027
  Serious: Yes (Other)
  Sender: FDA-Public Use
  Company Number: US-PFIZER INC-PV202200059437

PATIENT
  Age: 11 Year
  Sex: Female

DRUGS (15)
  1. SOMATROPIN [Suspect]
     Active Substance: SOMATROPIN
     Indication: Hypopituitarism
     Dosage: UNK
  2. SOMATROPIN [Suspect]
     Active Substance: SOMATROPIN
     Dosage: 0.8 MG/KG
     Dates: start: 20131113
  3. SOMATROPIN [Suspect]
     Active Substance: SOMATROPIN
     Dosage: 0.8 MG, DAILY
  4. SOMATROPIN [Suspect]
     Active Substance: SOMATROPIN
     Dosage: 0.3 MG, DAILY
  5. SOMATROPIN [Suspect]
     Active Substance: SOMATROPIN
     Dosage: 0.5 MG, DAILY
  6. SOMATROPIN [Suspect]
     Active Substance: SOMATROPIN
     Dosage: 0.3 MG, DAILY
  7. SOMATROPIN [Suspect]
     Active Substance: SOMATROPIN
     Dosage: INCREASED TO 0.8 MG/DAY INCREMENTALLY
  8. SOMATROPIN [Suspect]
     Active Substance: SOMATROPIN
     Dosage: 0.7 MG, DAILY
  9. SOMATROPIN [Suspect]
     Active Substance: SOMATROPIN
     Dosage: 0.4 MG, DAILY
  10. SOMATROPIN [Suspect]
     Active Substance: SOMATROPIN
     Dosage: INCREMENTALLY INCREASE THE DOSE TO 0.8 MG/DAY
  11. SOMATROPIN [Suspect]
     Active Substance: SOMATROPIN
     Dosage: 0.4 MG, DAILY
  12. SOMATROPIN [Suspect]
     Active Substance: SOMATROPIN
     Dosage: INCREASED TO 0.8 MG/DAY
  13. SOMATROPIN [Suspect]
     Active Substance: SOMATROPIN
     Dosage: INCREASED TO 0.9 MG/DAY
  14. HYDROCORTISONE [Concomitant]
     Active Substance: HYDROCORTISONE
     Indication: Hypopituitarism
     Dosage: UNK
  15. LEVOTHYROXINE [Concomitant]
     Active Substance: LEVOTHYROXINE
     Indication: Hypopituitarism

REACTIONS (2)
  - Idiopathic intracranial hypertension [Recovered/Resolved]
  - Drug ineffective [Recovered/Resolved]
